FAERS Safety Report 6156468-6 (Version None)
Quarter: 2009Q2

REPORT INFORMATION
  Report Type: 
  Country: None (occurrence: None)
  Receive Date: 20090416
  Receipt Date: 20090316
  Transmission Date: 20091009
  Serious: No
  Sender: FDA-Public Use
  Company Number: US-BAYER-200840700NA

PATIENT
  Sex: Male
  Weight: 79 kg

DRUGS (5)
  1. AVELOX [Suspect]
     Indication: SINUSITIS
     Dosage: TOOK 3 PILLS
  2. LIPITOR [Concomitant]
  3. QUINAPRIL [Concomitant]
  4. ALLOPURINOL [Concomitant]
  5. METOPROLOL TARTRATE [Concomitant]

REACTIONS (2)
  - SINUSITIS [None]
  - TREMOR [None]
